FAERS Safety Report 20108152 (Version 1)
Quarter: 2021Q4

REPORT INFORMATION
  Report Type: Spontaneous
  Country: US (occurrence: None)
  Receive Date: 20211123
  Receipt Date: 20211123
  Transmission Date: 20220303
  Serious: Yes (Death)
  Sender: FDA-Public Use
  Company Number: None

PATIENT
  Age: 34 Year
  Sex: Male

DRUGS (2)
  1. HERBALS\MITRAGYNINE [Suspect]
     Active Substance: HERBALS\MITRAGYNINE
  2. GABAPENTIN [Concomitant]

REACTIONS (5)
  - Unresponsive to stimuli [None]
  - Autopsy [None]
  - Pulmonary congestion [None]
  - Pulmonary oedema [None]
  - Herbal toxicity [None]

NARRATIVE: CASE EVENT DATE: 20200926
